FAERS Safety Report 4885749-9 (Version None)
Quarter: 2006Q1

REPORT INFORMATION
  Report Type: 
  Country: None (occurrence: None)
  Receive Date: 20060117
  Receipt Date: 20060103
  Transmission Date: 20060701
  Serious: Yes (Other)
  Sender: FDA-Public Use
  Company Number: 2005172722

PATIENT
  Age: 35 Year
  Sex: Female

DRUGS (8)
  1. NEURONTIN [Suspect]
     Indication: PAIN
     Dosage: 3600 MG (1 D)
     Dates: start: 20030101
  2. CLONAZEPAM [Concomitant]
  3. DOLIPRANE (PARCETAMOL) [Concomitant]
  4. BACLOFEN [Concomitant]
  5. HEXAQUINE (NIAOULI OIL, QUININE BENZOATE, THIAMINE HYDROCHLORIDE) [Concomitant]
  6. MESTINON [Concomitant]
  7. OMEPRAZOLE [Concomitant]
  8. AMITRIPTYLINE HCL [Concomitant]

REACTIONS (2)
  - ABORTION SPONTANEOUS [None]
  - DRUG EXPOSURE DURING PREGNANCY [None]
